FAERS Safety Report 7753157-9 (Version None)
Quarter: 2011Q3

REPORT INFORMATION
  Report Type: 
  Country: None (occurrence: None)
  Receive Date: 20110915
  Receipt Date: 20110906
  Transmission Date: 20111222
  Serious: Yes (Death, Life-Threatening)
  Sender: FDA-Public Use
  Company Number: GB-PFIZER INC-2011138188

PATIENT
  Age: 18 Year
  Sex: Female

DRUGS (8)
  1. CYTARABINE [Suspect]
     Indication: MYELODYSPLASTIC SYNDROME
  2. ETOPOSIDE [Suspect]
     Indication: MYELODYSPLASTIC SYNDROME
  3. DAUNORUBICIN HCL [Suspect]
     Indication: MYELODYSPLASTIC SYNDROME
  4. CYTARABINE [Suspect]
     Indication: ACUTE MYELOID LEUKAEMIA
     Dosage: UNK
     Dates: start: 20110114, end: 20110123
  5. GEMTUZUMAB OZOGAMICIN [Suspect]
     Indication: ACUTE MYELOID LEUKAEMIA
     Dosage: 6 MG/M2, UNK
     Dates: start: 20110114, end: 20110123
  6. DAUNORUBICIN HCL [Suspect]
     Indication: ACUTE MYELOID LEUKAEMIA
     Dosage: UNK
     Dates: start: 20110114, end: 20110123
  7. ETOPOSIDE [Suspect]
     Indication: ACUTE MYELOID LEUKAEMIA
     Dosage: UNK
     Dates: start: 20110114, end: 20110123
  8. GEMTUZUMAB OZOGAMICIN [Suspect]
     Indication: MYELODYSPLASTIC SYNDROME

REACTIONS (6)
  - ASCITES [None]
  - OESOPHAGITIS HAEMORRHAGIC [None]
  - DUODENAL ULCER HAEMORRHAGE [None]
  - ANAEMIA [None]
  - RENAL FAILURE ACUTE [None]
  - MUCOSAL INFLAMMATION [None]
